FAERS Safety Report 19817827 (Version 1)
Quarter: 2021Q3

REPORT INFORMATION
  Report Type: Other
  Country: CN (occurrence: CN)
  Receive Date: 20210911
  Receipt Date: 20210911
  Transmission Date: 20211014
  Serious: Yes (Other)
  Sender: FDA-Public Use
  Company Number: CN-ROCHE-2905891

PATIENT

DRUGS (1)
  1. TRASTUZUMAB. [Suspect]
     Active Substance: TRASTUZUMAB
     Indication: HER2 POSITIVE BREAST CANCER
     Dosage: INITIAL LOADING DOSE OF 8 MG/KG FOLLOWED BY 6 MG/KG?440MG(20ML)
     Route: 041

REACTIONS (1)
  - Bradycardia [Unknown]
